FAERS Safety Report 11266101 (Version 2)
Quarter: 2015Q3

REPORT INFORMATION
  Report Type: Spontaneous
  Country: BR (occurrence: BR)
  Receive Date: 20150713
  Receipt Date: 20150908
  Transmission Date: 20151125
  Serious: Yes (Hospitalization)
  Sender: FDA-Public Use
  Company Number: BR-PFIZER INC-2015084351

PATIENT
  Age: 62 Year
  Sex: Female
  Weight: 62 kg

DRUGS (2)
  1. CAPTOPRIL. [Concomitant]
     Active Substance: CAPTOPRIL
     Dosage: 2 TABLETS OF 50 MG, DAILY (1 TABLET IN THE MORNING AND 1 TABLET AT NIGHT)
  2. SUTENT [Suspect]
     Active Substance: SUNITINIB MALATE
     Indication: METASTATIC RENAL CELL CARCINOMA
     Dosage: 50 MG, CYCLIC (2 PER 1)
     Route: 048
     Dates: start: 201502

REACTIONS (4)
  - Feeding disorder [Not Recovered/Not Resolved]
  - Sensory disturbance [Not Recovered/Not Resolved]
  - Palmar-plantar erythrodysaesthesia syndrome [Unknown]
  - Dysgeusia [Not Recovered/Not Resolved]
